FAERS Safety Report 18861951 (Version 3)
Quarter: 2021Q2

REPORT INFORMATION
  Report Type: Spontaneous
  Country: CO (occurrence: CO)
  Receive Date: 20210209
  Receipt Date: 20210518
  Transmission Date: 20210717
  Serious: Yes (Hospitalization)
  Sender: FDA-Public Use
  Company Number: CO-EMD SERONO-9216701

PATIENT
  Age: 65 Year
  Sex: Female

DRUGS (8)
  1. RIBOCICLIB. [Suspect]
     Active Substance: RIBOCICLIB
     Indication: HORMONE RECEPTOR POSITIVE BREAST CANCER
     Route: 048
  2. RIBOCICLIB. [Suspect]
     Active Substance: RIBOCICLIB
     Indication: HER2 NEGATIVE BREAST CANCER
     Route: 048
     Dates: start: 202012
  3. FEMARA [Concomitant]
     Active Substance: LETROZOLE
     Indication: BREAST CANCER
     Route: 048
     Dates: start: 20201111, end: 202012
  4. METFORMIN [Suspect]
     Active Substance: METFORMIN HYDROCHLORIDE
     Indication: DIABETES MELLITUS
  5. RIBOCICLIB. [Suspect]
     Active Substance: RIBOCICLIB
     Indication: BREAST CANCER METASTATIC
     Dosage: 3 TABLETS OF 200 MG
     Route: 048
     Dates: start: 20201120, end: 202012
  6. FEMARA [Concomitant]
     Active Substance: LETROZOLE
     Route: 048
  7. LOSARTAN. [Concomitant]
     Active Substance: LOSARTAN
     Indication: HYPERTENSION
     Route: 048
  8. RIBOCICLIB. [Suspect]
     Active Substance: RIBOCICLIB
     Indication: POSTMENOPAUSE

REACTIONS (8)
  - Loss of consciousness [Unknown]
  - Hypokinesia [Unknown]
  - Off label use [Unknown]
  - Haemoglobin decreased [Unknown]
  - Escherichia bacteraemia [Unknown]
  - Breast cancer recurrent [Unknown]
  - Decreased immune responsiveness [Unknown]
  - Pneumonia [Recovering/Resolving]

NARRATIVE: CASE EVENT DATE: 20201206
